FAERS Safety Report 5507012-5 (Version None)
Quarter: 2007Q4

REPORT INFORMATION
  Report Type: 
  Country: None (occurrence: None)
  Receive Date: 20071105
  Receipt Date: 20070920
  Transmission Date: 20080405
  Serious: No
  Sender: FDA-Public Use
  Company Number: US-BOEHRINGER INGELHEIM PHARMACEUTICALS, INC.-2006-BP-09464BP

PATIENT
  Sex: Female

DRUGS (48)
  1. MIRAPEX [Suspect]
     Indication: RESTLESS LEGS SYNDROME
     Route: 048
     Dates: start: 20040201, end: 20050701
  2. ATARAX [Concomitant]
     Indication: PRURITUS
     Dates: start: 19800808
  3. PERIACTIN [Concomitant]
     Dates: start: 19800815
  4. BENADRYL [Concomitant]
  5. CYTOMEL [Concomitant]
     Indication: ASTHENIA
     Dates: start: 20000101
  6. ZESTRIL [Concomitant]
     Indication: HYPERTENSION
     Dates: start: 20011221
  7. KLONOPIN [Concomitant]
     Indication: RESTLESS LEGS SYNDROME
     Dates: start: 20051128, end: 20060505
  8. LEXAPRO [Concomitant]
     Dates: start: 20021206
  9. TRAZODONE HCL [Concomitant]
     Route: 048
     Dates: start: 20030623
  10. DETROL LA [Concomitant]
     Dates: start: 20050324
  11. DITROPAN XL [Concomitant]
     Dates: start: 20050324
  12. COZAAR [Concomitant]
     Dates: start: 20070206
  13. WELLBUTRIN SR [Concomitant]
     Dates: start: 20000617
  14. REMERON [Concomitant]
     Dates: start: 20011024
  15. EFFEXOR [Concomitant]
     Dates: start: 20010706
  16. CELEXA [Concomitant]
     Indication: DEPRESSION
  17. CELEXA [Concomitant]
     Dates: start: 20070327
  18. PREMARIN [Concomitant]
     Indication: HORMONE THERAPY
  19. PROVIGIL [Concomitant]
     Indication: FATIGUE
     Dates: start: 20060810
  20. VIOXX [Concomitant]
  21. PRILOSEC [Concomitant]
     Indication: LARYNGITIS
  22. VITAMINS [Concomitant]
  23. CHONDO [Concomitant]
  24. TETANUS BOOSTER [Concomitant]
     Dates: start: 19950101
  25. HYDROCHLOROTHIAZIDE [Concomitant]
     Dates: start: 20030101, end: 20040108
  26. NEXIUM [Concomitant]
  27. ESTRACE VAG CREAM [Concomitant]
     Dates: start: 20050101
  28. DITROPAN XL [Concomitant]
     Route: 048
     Dates: start: 20050505
  29. AMBIEN [Concomitant]
     Indication: INSOMNIA
  30. ADVIL [Concomitant]
     Indication: ARTHRALGIA
  31. STOOL SOFTENER [Concomitant]
  32. MIRALAX [Concomitant]
  33. GLYCOLAX [Concomitant]
     Indication: BOWEL MOVEMENT IRREGULARITY
  34. CITALOPRAM HYDROBROMIDE [Concomitant]
     Indication: DEPRESSION
  35. FISH OIL CAP [Concomitant]
     Indication: VITAMIN SUPPLEMENTATION
  36. ULTRAFIORA [Concomitant]
  37. CHONDRO RELIEF [Concomitant]
     Indication: ARTHROPATHY
  38. CENTRUM VITAMINS [Concomitant]
     Indication: VITAMIN SUPPLEMENTATION
  39. PERCOCET [Concomitant]
     Dates: start: 20050101
  40. LEVAQUIN [Concomitant]
     Route: 048
     Dates: start: 20050101
  41. ACIDOPHILUS [Concomitant]
     Indication: SUPPLEMENTATION THERAPY
  42. ENDURA [Concomitant]
     Indication: PHYTOTHERAPY
  43. IBUPROFEN [Concomitant]
     Indication: PAIN
     Dates: start: 20050602
  44. COLACE [Concomitant]
     Route: 048
  45. MINAFORT [Concomitant]
  46. EXHILARIN [Concomitant]
     Indication: SUPPLEMENTATION THERAPY
  47. ENDESEN [Concomitant]
     Indication: GASTROINTESTINAL DISORDER
  48. EPADHA [Concomitant]
     Indication: SUPPLEMENTATION THERAPY

REACTIONS (3)
  - DEPRESSION [None]
  - OBSESSIVE-COMPULSIVE DISORDER [None]
  - PATHOLOGICAL GAMBLING [None]
